FAERS Safety Report 9328698 (Version 1)
Quarter: 2013Q2

REPORT INFORMATION
  Report Type: Spontaneous
  Country: IT (occurrence: IT)
  Receive Date: 20130604
  Receipt Date: 20130604
  Transmission Date: 20140414
  Serious: Yes (Hospitalization)
  Sender: FDA-Public Use
  Company Number: IT-TEVA-409088ISR

PATIENT
  Age: 70 Year
  Sex: Male

DRUGS (6)
  1. AMOXICILLIN [Suspect]
     Indication: PROPHYLAXIS
     Dosage: 2 GRAM DAILY;
     Route: 048
     Dates: start: 20130510, end: 20130510
  2. COUMADIN [Concomitant]
  3. CORDARONE [Concomitant]
  4. LOSARTAN POTASSICO [Concomitant]
  5. FUROSEMIDE [Concomitant]
  6. ACIDO ACETILSALICILICO [Concomitant]

REACTIONS (5)
  - Anaphylactic shock [Recovered/Resolved]
  - Hypotension [Recovered/Resolved]
  - Angioedema [Recovered/Resolved]
  - Hyperaemia [Recovered/Resolved]
  - Hyperhidrosis [Recovered/Resolved]
